FAERS Safety Report 9134007 (Version 1)
Quarter: 2013Q1

REPORT INFORMATION
  Report Type: Spontaneous
  Country: US (occurrence: None)
  Receive Date: 20130226
  Receipt Date: 20130226
  Transmission Date: 20140127
  Serious: Yes (Death)
  Sender: FDA-Public Use
  Company Number: None

PATIENT
  Age: 30 Year
  Sex: Male
  Weight: 65.77 kg

DRUGS (1)
  1. EXCEDRIN MIGRAINE [Suspect]
     Indication: MIGRAINE
     Dosage: 2  GELTABS?03/18/2012  --  03/19/2012
     Route: 048
     Dates: start: 20120318, end: 20120319

REACTIONS (3)
  - Poor quality sleep [None]
  - Wrong drug administered [None]
  - Product quality issue [None]
